FAERS Safety Report 6931573-2 (Version None)
Quarter: 2010Q3

REPORT INFORMATION
  Report Type: 
  Country: None (occurrence: None)
  Receive Date: 20100819
  Receipt Date: 20100805
  Transmission Date: 20110219
  Serious: Yes (Hospitalization, Other)
  Sender: FDA-Public Use
  Company Number: US-ELI_LILLY_AND_COMPANY-US201008003865

PATIENT
  Sex: Female

DRUGS (10)
  1. FORTEO [Suspect]
     Indication: OSTEOPOROSIS
     Dosage: 20 UG, DAILY (1/D)
  2. FLUOXETINE [Concomitant]
     Dosage: 20 UG, DAILY (1/D)
  3. SERTRALINE HYDROCHLORIDE [Concomitant]
     Dosage: 25 MG, DAILY (1/D)
  4. BUSPIRONE HCL [Concomitant]
     Dosage: 5 MG, DAILY (1/D)
  5. DORZOLAMIDE [Concomitant]
     Dosage: UNK, 2/D
  6. TRAVATAN [Concomitant]
     Dosage: UNK, DAILY (1/D)
  7. FEMARA [Concomitant]
     Dosage: 2.5 MG, DAILY (1/D)
  8. VITAMIN D [Concomitant]
     Dosage: 50000 U, WEEKLY (1/W)
  9. MEGESTROL [Concomitant]
     Dosage: 40 MG, DAILY (1/D)
  10. OXYCODONE HCL AND ACETAMINOPHEN [Concomitant]
     Dosage: UNK, AS NEEDED

REACTIONS (5)
  - ARTHRALGIA [None]
  - BACK PAIN [None]
  - CEREBRAL HAEMORRHAGE [None]
  - FALL [None]
  - HEADACHE [None]
